FAERS Safety Report 6478073-4 (Version None)
Quarter: 2009Q4

REPORT INFORMATION
  Report Type: 
  Country: None (occurrence: None)
  Receive Date: 20091207
  Receipt Date: 20091202
  Transmission Date: 20100525
  Serious: Yes (Hospitalization, Disabling)
  Sender: FDA-Public Use
  Company Number: US-MERCK-0906USA01116

PATIENT
  Age: 51 Year
  Sex: Female
  Weight: 57 kg

DRUGS (3)
  1. FOSAMAX [Suspect]
     Indication: OSTEOPOROSIS
     Route: 048
     Dates: start: 19961001, end: 20071001
  2. FOSAMAX [Suspect]
     Route: 048
     Dates: start: 19961001, end: 20071001
  3. FOSAMAX PLUS D [Suspect]
     Route: 048
     Dates: start: 20070801, end: 20071001

REACTIONS (23)
  - ANXIETY DISORDER [None]
  - ARTHRALGIA [None]
  - BLOOD CHOLESTEROL INCREASED [None]
  - BLOOD PRESSURE INADEQUATELY CONTROLLED [None]
  - BONE METABOLISM DISORDER [None]
  - CHRONIC SINUSITIS [None]
  - COUGH [None]
  - DIVERTICULUM [None]
  - FALL [None]
  - FEMUR FRACTURE [None]
  - HAEMORRHOIDS [None]
  - HIP FRACTURE [None]
  - HYPERPARATHYROIDISM PRIMARY [None]
  - HYPERSENSITIVITY [None]
  - HYPERTENSION [None]
  - INSOMNIA [None]
  - LOW TURNOVER OSTEOPATHY [None]
  - MUSCLE STRAIN [None]
  - MUSCULOSKELETAL DISCOMFORT [None]
  - SCOLIOSIS [None]
  - STRESS FRACTURE [None]
  - TENDONITIS [None]
  - VITAMIN D DEFICIENCY [None]
